FAERS Safety Report 21748385 (Version 1)
Quarter: 2022Q4

REPORT INFORMATION
  Report Type: Spontaneous
  Country: US (occurrence: US)
  Receive Date: 20221219
  Receipt Date: 20221219
  Transmission Date: 20230112
  Serious: No
  Sender: FDA-Public Use
  Company Number: US-PFIZER INC-202201378534

PATIENT
  Age: 95 Year
  Sex: Female

DRUGS (12)
  1. IBRANCE [Suspect]
     Active Substance: PALBOCICLIB
     Dosage: EVERY OTHER DAY FOR 21 DAYS, 7 DAYS OFF
  2. FASLODEX [Concomitant]
     Active Substance: FULVESTRANT
  3. XALATAN [Concomitant]
     Active Substance: LATANOPROST
  4. VITAMIN B12 [Concomitant]
     Active Substance: CYANOCOBALAMIN
  5. VITAMIN D3 [Concomitant]
     Active Substance: CHOLECALCIFEROL
  6. TIMOPTIC [Concomitant]
     Active Substance: TIMOLOL MALEATE
  7. MAGNESIUM [Concomitant]
     Active Substance: MAGNESIUM
  8. IRBESARTAN [Concomitant]
     Active Substance: IRBESARTAN
  9. AMLODIPINE BESYLATE [Concomitant]
     Active Substance: AMLODIPINE BESYLATE
  10. CALCIUM [Concomitant]
     Active Substance: CALCIUM
  11. VITAMINS NOS [Concomitant]
     Active Substance: VITAMINS
  12. IRON [Concomitant]
     Active Substance: IRON

REACTIONS (3)
  - White blood cell count decreased [Recovered/Resolved]
  - Diarrhoea [Recovered/Resolved]
  - Off label use [Unknown]
